FAERS Safety Report 19386452 (Version 1)
Quarter: 2021Q2

REPORT INFORMATION
  Report Type: Spontaneous
  Country: US (occurrence: US)
  Receive Date: 20210607
  Receipt Date: 20210607
  Transmission Date: 20210717
  Serious: No
  Sender: FDA-Public Use
  Company Number: None

PATIENT
  Age: 74 Year
  Sex: Male

DRUGS (1)
  1. LISINOPRIL (LISINOPRIL 10MG TAB, UD) [Suspect]
     Active Substance: LISINOPRIL
     Indication: HYPERTENSION
     Route: 048
     Dates: start: 20160916, end: 20210208

REACTIONS (2)
  - Angioedema [None]
  - Gastrointestinal wall thickening [None]

NARRATIVE: CASE EVENT DATE: 20210208
